FAERS Safety Report 5390591-9 (Version None)
Quarter: 2007Q3

REPORT INFORMATION
  Report Type: 
  Country: None (occurrence: None)
  Receive Date: 20070718
  Receipt Date: 20070713
  Transmission Date: 20080115
  Serious: Yes (Other)
  Sender: FDA-Public Use
  Company Number: NL-ASTRAZENECA-2007AC01277

PATIENT
  Age: 25892 Day
  Sex: Female
  Weight: 61 kg

DRUGS (2)
  1. ARIMIDEX [Suspect]
     Indication: BREAST CANCER
     Route: 048
     Dates: start: 20041111
  2. OMEPRAZOLE [Concomitant]
     Dates: start: 19991016

REACTIONS (1)
  - TOOTH DISORDER [None]
